FAERS Safety Report 16395812 (Version 3)
Quarter: 2019Q3

REPORT INFORMATION
  Report Type: Spontaneous
  Country: DE (occurrence: DE)
  Receive Date: 20190605
  Receipt Date: 20190812
  Transmission Date: 20191004
  Serious: Yes (Death, Other)
  Sender: FDA-Public Use
  Company Number: DE-GILEAD-2019-0400655

PATIENT
  Age: 52 Year

DRUGS (1)
  1. YESCARTA [Suspect]
     Active Substance: AXICABTAGENE CILOLEUCEL
     Indication: DIFFUSE LARGE B-CELL LYMPHOMA
     Dosage: UNK
     Route: 042
     Dates: start: 201812, end: 201812

REACTIONS (6)
  - Cytokine release syndrome [Unknown]
  - Diffuse large B-cell lymphoma [Fatal]
  - Cytokine storm [Recovered/Resolved]
  - Therapy non-responder [Unknown]
  - Neurotoxicity [Recovered/Resolved]
  - Bone marrow failure [Recovered/Resolved]

NARRATIVE: CASE EVENT DATE: 20181216
